FAERS Safety Report 6028469-X (Version None)
Quarter: 2008Q4

REPORT INFORMATION
  Report Type: 
  Country: None (occurrence: None)
  Receive Date: 20081222
  Receipt Date: 20081023
  Transmission Date: 20090506
  Serious: No
  Sender: FDA-Public Use
  Company Number: US-WYE-H06542708

PATIENT
  Age: 34 Year
  Sex: Male
  Weight: 97.61 kg

DRUGS (1)
  1. PRISTIQ [Suspect]
     Indication: ANXIETY
     Dosage: 50 MG 1X PER 1 DAY, ORAL
     Route: 048
     Dates: start: 20081018

REACTIONS (4)
  - APATHY [None]
  - DEPRESSION [None]
  - HEADACHE [None]
  - VOMITING [None]
